FAERS Safety Report 9321492 (Version 2)
Quarter: 2013Q2

REPORT INFORMATION
  Report Type: Spontaneous
  Country: US (occurrence: None)
  Receive Date: 20130528
  Receipt Date: 20130618
  Transmission Date: 20140414
  Serious: Yes (Other)
  Sender: FDA-Public Use
  Company Number: US-1198286

PATIENT
  Age: 72 Year
  Sex: Female
  Weight: 83.92 kg

DRUGS (12)
  1. NEVANAC [Suspect]
     Indication: CATARACT OPERATION
     Dosage: (OPHTHALMIC)
     Route: 047
     Dates: start: 20130405, end: 20130508
  2. SYNTHROID [Concomitant]
  3. REFRESH [Concomitant]
  4. REFRESH [Concomitant]
  5. OPTIVAR [Concomitant]
  6. SPIRIVA [Concomitant]
  7. ZYRTEC [Concomitant]
  8. HYDROCHLOROTHIAZIDE [Concomitant]
  9. LISINOPRIL [Concomitant]
  10. COLCHICINE [Concomitant]
  11. PURINOL [Concomitant]
  12. NEXIUM [Concomitant]

REACTIONS (13)
  - Dry eye [None]
  - Ocular discomfort [None]
  - Eye pain [None]
  - Eyelid margin crusting [None]
  - Sinusitis [None]
  - Nausea [None]
  - Headache [None]
  - Abnormal sensation in eye [None]
  - Foreign body sensation in eyes [None]
  - Diplopia [None]
  - Photophobia [None]
  - Eye swelling [None]
  - Fungal infection [None]
